FAERS Safety Report 12254436 (Version 2)
Quarter: 2016Q2

REPORT INFORMATION
  Report Type: Spontaneous
  Country: IE (occurrence: IE)
  Receive Date: 20160411
  Receipt Date: 20160413
  Transmission Date: 20160815
  Serious: Yes (Other)
  Sender: FDA-Public Use
  Company Number: IE-JNJFOC-20160402427

PATIENT
  Age: 70 Year
  Sex: Female

DRUGS (5)
  1. ISONIAZID. [Concomitant]
     Active Substance: ISONIAZID
     Route: 065
  2. STELARA [Suspect]
     Active Substance: USTEKINUMAB
     Indication: PRODUCT USED FOR UNKNOWN INDICATION
     Route: 058
     Dates: start: 20150918
  3. PYRIDOXINE [Concomitant]
     Active Substance: PYRIDOXINE
     Route: 065
  4. STELARA [Suspect]
     Active Substance: USTEKINUMAB
     Indication: PRODUCT USED FOR UNKNOWN INDICATION
     Route: 058
  5. IRPRESTAN [Concomitant]
     Route: 065

REACTIONS (2)
  - Tuberculosis [Unknown]
  - Nasopharyngitis [Not Recovered/Not Resolved]

NARRATIVE: CASE EVENT DATE: 201603
